FAERS Safety Report 6853024-9 (Version None)
Quarter: 2010Q3

REPORT INFORMATION
  Report Type: 
  Country: None (occurrence: None)
  Receive Date: 20100717
  Receipt Date: 20071128
  Transmission Date: 20110219
  Serious: No
  Sender: FDA-Public Use
  Company Number: US-PFIZER INC-2007102093

PATIENT
  Age: 51 Year
  Sex: Female
  Weight: 84.09 kg

DRUGS (1)
  1. CHANTIX [Suspect]
     Indication: SMOKING CESSATION THERAPY
     Route: 048
     Dates: start: 20071127

REACTIONS (3)
  - DECREASED APPETITE [None]
  - DIZZINESS [None]
  - NAUSEA [None]
